FAERS Safety Report 22186945 (Version 1)
Quarter: 2023Q2

REPORT INFORMATION
  Report Type: Spontaneous
  Country: JP (occurrence: JP)
  Receive Date: 20230407
  Receipt Date: 20230407
  Transmission Date: 20230722
  Serious: Yes (Death, Hospitalization)
  Sender: FDA-Public Use
  Company Number: JP-JNJFOC-20211124489

PATIENT
  Age: 55 Year
  Sex: Male
  Weight: 67.8 kg

DRUGS (7)
  1. EDURANT [Suspect]
     Active Substance: RILPIVIRINE HYDROCHLORIDE
     Indication: HIV infection
     Route: 048
     Dates: start: 20161229
  2. TIVICAY [Suspect]
     Active Substance: DOLUTEGRAVIR SODIUM
     Indication: HIV infection
     Route: 048
     Dates: start: 20161229
  3. MARAVIROC [Suspect]
     Active Substance: MARAVIROC
     Indication: HIV infection
     Dosage: DOSE UNKNOWN
     Route: 048
     Dates: start: 20100501
  4. MARAVIROC [Suspect]
     Active Substance: MARAVIROC
     Indication: HIV infection
     Route: 048
     Dates: start: 20161229
  5. PREZISTA [Concomitant]
     Active Substance: DARUNAVIR ETHANOLATE
     Indication: HIV infection
     Dosage: 300MGX4 TABLETS
     Route: 048
     Dates: start: 20080214, end: 20151202
  6. PREZISTA [Concomitant]
     Active Substance: DARUNAVIR ETHANOLATE
     Indication: HIV infection
     Dosage: 600MGX2 TABLETS
     Route: 048
     Dates: start: 20151203, end: 20161229
  7. INTELENCE [Concomitant]
     Active Substance: ETRAVIRINE
     Indication: HIV infection
     Route: 048
     Dates: start: 20090901, end: 20161229

REACTIONS (3)
  - Death [Fatal]
  - Arteriovenous graft site infection [Recovered/Resolved]
  - Arteriovenous graft site pseudoaneurysm [Recovered/Resolved]

NARRATIVE: CASE EVENT DATE: 20190101
